FAERS Safety Report 25592391 (Version 3)
Quarter: 2025Q3

REPORT INFORMATION
  Report Type: Report from Study
  Country: US (occurrence: US)
  Receive Date: 20250722
  Receipt Date: 20250828
  Transmission Date: 20251020
  Serious: Yes (Other)
  Sender: PFIZER
  Company Number: US-PFIZER INC-202500126510

PATIENT
  Age: 74 Year
  Sex: Female

DRUGS (16)
  1. IBRANCE [Suspect]
     Active Substance: PALBOCICLIB
     Indication: Breast cancer female
     Route: 048
     Dates: start: 20250619
  2. IBRANCE [Suspect]
     Active Substance: PALBOCICLIB
     Dates: start: 2025
  3. NEXIUM I.V. [Concomitant]
     Active Substance: ESOMEPRAZOLE SODIUM
  4. SYNTHROID [Concomitant]
     Active Substance: LEVOTHYROXINE SODIUM
  5. BUPROPION [Concomitant]
     Active Substance: BUPROPION
  6. SIMVASTATIN [Concomitant]
     Active Substance: SIMVASTATIN
  7. ANASTROZOLE [Concomitant]
     Active Substance: ANASTROZOLE
  8. DEXAMETHASONE [Concomitant]
     Active Substance: DEXAMETHASONE
  9. LOPERAMIDE [Concomitant]
     Active Substance: LOPERAMIDE
  10. VITAMINS [Concomitant]
     Active Substance: VITAMINS
  11. METAMUCIL [INULIN] [Concomitant]
  12. TUMS [Concomitant]
     Active Substance: CALCIUM CARBONATE
  13. XGEVA [Concomitant]
     Active Substance: DENOSUMAB
  14. IRON [Concomitant]
     Active Substance: IRON
  15. FERRIC POLYSACCHARIDE COMPLEX [Concomitant]
     Active Substance: FERRIC POLYSACCHARIDE COMPLEX
  16. CANNABIDIOL [Concomitant]
     Active Substance: CANNABIDIOL

REACTIONS (8)
  - Blood iron decreased [Recovering/Resolving]
  - Dyspnoea [Not Recovered/Not Resolved]
  - Dizziness [Not Recovered/Not Resolved]
  - Red blood cell count decreased [Not Recovered/Not Resolved]
  - White blood cell count decreased [Not Recovered/Not Resolved]
  - Asthenia [Not Recovered/Not Resolved]
  - Diarrhoea [Recovered/Resolved]
  - Fatigue [Not Recovered/Not Resolved]

NARRATIVE: CASE EVENT DATE: 20250101
